FAERS Safety Report 15093784 (Version 1)
Quarter: 2018Q2

REPORT INFORMATION
  Report Type: Spontaneous
  Country: US (occurrence: US)
  Receive Date: 20180629
  Receipt Date: 20180629
  Transmission Date: 20180711
  Serious: No
  Sender: FDA-Public Use
  Company Number: US-BRACCO-014635

PATIENT
  Age: 23 Year
  Sex: Female

DRUGS (1)
  1. PROHANCE [Suspect]
     Active Substance: GADOTERIDOL
     Indication: DIAGNOSTIC PROCEDURE
     Dates: start: 20170502, end: 20170502

REACTIONS (1)
  - Upper respiratory tract congestion [Unknown]

NARRATIVE: CASE EVENT DATE: 20170502
